FAERS Safety Report 5008764-3 (Version None)
Quarter: 2006Q2

REPORT INFORMATION
  Report Type: 
  Country: None (occurrence: None)
  Receive Date: 20060517
  Receipt Date: 20060516
  Transmission Date: 20061013
  Serious: Yes (Other)
  Sender: FDA-Public Use
  Company Number: 220466

PATIENT
  Age: 51 Year
  Sex: Female
  Weight: 75 kg

DRUGS (2)
  1. AVASTIN [Suspect]
     Indication: RENAL CANCER METASTATIC
     Dosage: 750 MG, INTRAVENOUS
     Route: 042
     Dates: start: 20051117
  2. TARCEVA [Suspect]
     Indication: RENAL CANCER METASTATIC
     Dosage: 150 MG, ORAL
     Route: 048
     Dates: start: 20051117

REACTIONS (2)
  - ANAEMIA [None]
  - URINARY TRACT INFECTION [None]
